FAERS Safety Report 7865780-1 (Version None)
Quarter: 2011Q4

REPORT INFORMATION
  Report Type: 
  Country: None (occurrence: None)
  Receive Date: 20111028
  Receipt Date: 20110222
  Transmission Date: 20120403
  Serious: No
  Sender: FDA-Public Use
  Company Number: US-GLAXOSMITHKLINE-A0914882A

PATIENT
  Age: 71 Year
  Sex: Male

DRUGS (5)
  1. PREDNISONE [Concomitant]
  2. ADVAIR DISKUS 100/50 [Suspect]
     Indication: CHRONIC OBSTRUCTIVE PULMONARY DISEASE
     Dosage: 1PUFF TWICE PER DAY
     Route: 055
     Dates: start: 20080201
  3. ALBUTEROL [Concomitant]
  4. SPIRIVA [Concomitant]
  5. NYSTATIN [Concomitant]

REACTIONS (2)
  - APHONIA [None]
  - FUNGAL INFECTION [None]
